FAERS Safety Report 7010346-9 (Version None)
Quarter: 2010Q3

REPORT INFORMATION
  Report Type: 
  Country: None (occurrence: None)
  Receive Date: 20100923
  Receipt Date: 20100913
  Transmission Date: 20110219
  Serious: Yes (Other)
  Sender: FDA-Public Use
  Company Number: US-BAXTER-2010BH023810

PATIENT

DRUGS (4)
  1. CYCLOPHOSPHAMIDE [Suspect]
     Indication: MULTIPLE MYELOMA
     Route: 048
  2. DEXAMETHASONE [Suspect]
     Indication: MULTIPLE MYELOMA
     Route: 048
  3. BORTEZOMIB [Suspect]
     Indication: MULTIPLE MYELOMA
     Route: 042
  4. LENALIDOMIDE [Suspect]
     Indication: MULTIPLE MYELOMA
     Route: 048

REACTIONS (4)
  - CAECITIS [None]
  - FEBRILE NEUTROPENIA [None]
  - LEUKOPENIA [None]
  - NEUTROPENIA [None]
